FAERS Safety Report 6863497-3 (Version None)
Quarter: 2010Q3

REPORT INFORMATION
  Report Type: 
  Country: None (occurrence: None)
  Receive Date: 20100721
  Receipt Date: 20100709
  Transmission Date: 20110219
  Serious: Yes (Life-Threatening)
  Sender: FDA-Public Use
  Company Number: JP-PFIZER INC-2010068445

PATIENT
  Age: 90 Year
  Sex: Male

DRUGS (1)
  1. ESTRACYT [Suspect]
     Indication: PROSTATE CANCER
     Dosage: 313.4 MG/DAY
     Route: 048
     Dates: start: 20091203, end: 20100227

REACTIONS (1)
  - PHARYNGEAL OEDEMA [None]
